APPROVED DRUG PRODUCT: DALVANCE
Active Ingredient: DALBAVANCIN HYDROCHLORIDE
Strength: EQ 500MG BASE/VIAL
Dosage Form/Route: POWDER;INTRAVENOUS
Application: N021883 | Product #001 | TE Code: AP
Applicant: ABBVIE INC
Approved: May 23, 2014 | RLD: Yes | RS: Yes | Type: RX

PATENTS:
Patent 6900175 | Expires: May 23, 2028